FAERS Safety Report 19067171 (Version 1)
Quarter: 2021Q1

REPORT INFORMATION
  Report Type: Spontaneous
  Country: JP (occurrence: JP)
  Receive Date: 20210329
  Receipt Date: 20210329
  Transmission Date: 20210420
  Serious: Yes (Death, Life-Threatening, Other)
  Sender: FDA-Public Use
  Company Number: JP-JAZZ-2021-JP-005495

PATIENT
  Age: 32 Year
  Sex: Female
  Weight: 67.7 kg

DRUGS (2)
  1. DEFITELIO [Suspect]
     Active Substance: DEFIBROTIDE SODIUM
     Indication: VENOOCCLUSIVE LIVER DISEASE
     Dosage: 25 MILLIGRAM/KILOGRAM/24 HOURS
     Route: 042
     Dates: start: 20201029, end: 20201107
  2. DEFITELIO [Suspect]
     Active Substance: DEFIBROTIDE SODIUM
     Dosage: 25 MILLIGRAM/KILOGRAM/24 HOURS
     Route: 042
     Dates: start: 20201118, end: 20201118

REACTIONS (4)
  - Tumour haemorrhage [Recovering/Resolving]
  - Off label use [Unknown]
  - Tumour lysis syndrome [Recovering/Resolving]
  - Arterial haemorrhage [Recovering/Resolving]

NARRATIVE: CASE EVENT DATE: 20201107
